FAERS Safety Report 6739597-5 (Version None)
Quarter: 2010Q2

REPORT INFORMATION
  Report Type: 
  Country: None (occurrence: None)
  Receive Date: 20100525
  Receipt Date: 20100217
  Transmission Date: 20101027
  Serious: Yes (Other)
  Sender: FDA-Public Use
  Company Number: US-AMGEN-QUU393510

PATIENT
  Sex: Female

DRUGS (14)
  1. NPLATE [Suspect]
     Indication: IDIOPATHIC THROMBOCYTOPENIC PURPURA
     Dates: start: 20090908, end: 20091008
  2. CORTICOSTEROIDS [Concomitant]
     Dates: start: 20060101
  3. IMMU-G [Concomitant]
     Route: 042
     Dates: start: 20090902
  4. METFORMIN HCL [Concomitant]
  5. EFFEXOR [Concomitant]
  6. LAMICTAL [Concomitant]
  7. LISINOPRIL [Concomitant]
  8. LEVOTHYROXINE SODIUM [Concomitant]
  9. XANAX [Concomitant]
  10. SEROQUEL [Concomitant]
  11. INSULIN [Concomitant]
  12. LANTUS [Concomitant]
  13. COMBIVENT [Concomitant]
     Route: 055
  14. ADVAIR DISKUS 100/50 [Concomitant]
     Route: 055

REACTIONS (1)
  - DRUG INEFFECTIVE [None]
